FAERS Safety Report 7265840-2 (Version None)
Quarter: 2011Q1

REPORT INFORMATION
  Report Type: 
  Country: None (occurrence: None)
  Receive Date: 20110131
  Receipt Date: 20110125
  Transmission Date: 20110831
  Serious: Yes (Hospitalization)
  Sender: FDA-Public Use
  Company Number: A0909136A

PATIENT
  Age: 62 Year
  Sex: Female

DRUGS (3)
  1. CRYSTALLINE VIT B12 INJ [Concomitant]
  2. ONE-A-DAY VITAMIN [Concomitant]
  3. ROPINIROLE HYDROCHLORIDE [Suspect]
     Indication: RESTLESS LEGS SYNDROME
     Dosage: 1MG PER DAY
     Route: 048

REACTIONS (5)
  - NAUSEA [None]
  - ATRIAL FIBRILLATION [None]
  - VOMITING [None]
  - OVERDOSE [None]
  - MEDICATION ERROR [None]
